FAERS Safety Report 17141470 (Version 2)
Quarter: 2024Q4

REPORT INFORMATION
  Report Type: Report from Study
  Country: US (occurrence: US)
  Receive Date: 20191211
  Receipt Date: 20241231
  Transmission Date: 20250115
  Serious: Yes (Hospitalization, Other)
  Sender: TAKEDA
  Company Number: US-SHIRE-US201941169

PATIENT
  Sex: Female
  Weight: 74.376 kg

DRUGS (35)
  1. .ALPHA.1-PROTEINASE INHIBITOR HUMAN [Suspect]
     Active Substance: .ALPHA.1-PROTEINASE INHIBITOR HUMAN
     Indication: Alpha-1 antitrypsin deficiency
     Dosage: 60 MILLIGRAM/KILOGRAM, 1/WEEK
     Dates: start: 20050524
  2. .ALPHA.1-PROTEINASE INHIBITOR HUMAN [Suspect]
     Active Substance: .ALPHA.1-PROTEINASE INHIBITOR HUMAN
     Indication: Immune system disorder
  3. FLUARIX NOS [Concomitant]
     Active Substance: INFLUENZA VIRUS VACCINE
  4. DIPHENHYDRAMINE [Concomitant]
     Active Substance: DIPHENHYDRAMINE
  5. HEPARIN [Concomitant]
     Active Substance: HEPARIN SODIUM
  6. SODIUM CHLORIDE [Concomitant]
     Active Substance: SODIUM CHLORIDE
  7. EPINEPHRINE [Concomitant]
     Active Substance: EPINEPHRINE
  8. HONEY [Concomitant]
     Active Substance: HONEY
  9. CEPHALEXIN [Concomitant]
     Active Substance: CEPHALEXIN
  10. CEFTAZIDIME [Concomitant]
     Active Substance: CEFTAZIDIME
  11. MICONAZOLE [Concomitant]
     Active Substance: MICONAZOLE
  12. METHOCARBAMOL [Concomitant]
     Active Substance: METHOCARBAMOL
  13. CYCLOBENZAPRINE [Concomitant]
     Active Substance: CYCLOBENZAPRINE
  14. ALBUTEROL [Concomitant]
     Active Substance: ALBUTEROL
  15. FLONASE [Concomitant]
     Active Substance: FLUTICASONE PROPIONATE
  16. FUROSEMIDE [Concomitant]
     Active Substance: FUROSEMIDE
  17. PREDNISONE [Concomitant]
     Active Substance: PREDNISONE
  18. ALENDRONATE [Concomitant]
     Active Substance: ALENDRONATE SODIUM
  19. FOLIC ACID [Concomitant]
     Active Substance: FOLIC ACID
  20. ACETAMINOPHEN [Concomitant]
     Active Substance: ACETAMINOPHEN
  21. CALCIUM CARBONATE [Concomitant]
     Active Substance: CALCIUM CARBONATE
  22. METRONIDAZOLE [Concomitant]
     Active Substance: METRONIDAZOLE
  23. KLOR-CON [Concomitant]
     Active Substance: POTASSIUM CHLORIDE
  24. CLOTRIMAZOLE [Concomitant]
     Active Substance: CLOTRIMAZOLE
  25. GABAPENTIN [Concomitant]
     Active Substance: GABAPENTIN
  26. MIRALAX [Concomitant]
     Active Substance: POLYETHYLENE GLYCOL 3350
  27. Dulcolax [Concomitant]
  28. IBUPROFEN [Concomitant]
     Active Substance: IBUPROFEN
  29. AMITRIPTYLINE [Concomitant]
     Active Substance: AMITRIPTYLINE
  30. OXYGEN [Concomitant]
     Active Substance: OXYGEN
  31. OMEGA-3 ACIDS [Concomitant]
     Active Substance: OMEGA-3 FATTY ACIDS
  32. FISH OIL [Concomitant]
     Active Substance: FISH OIL
  33. CRESTOR [Concomitant]
     Active Substance: ROSUVASTATIN CALCIUM
  34. ASPIRIN [Concomitant]
     Active Substance: ASPIRIN
  35. OMEPRAZOLE [Concomitant]
     Active Substance: OMEPRAZOLE

REACTIONS (3)
  - Cerebrovascular accident [Unknown]
  - Fall [Unknown]
  - Injury [Unknown]
